FAERS Safety Report 4391564-5 (Version None)
Quarter: 2004Q3

REPORT INFORMATION
  Report Type: 
  Country: None (occurrence: None)
  Receive Date: 20040702
  Receipt Date: 20040213
  Transmission Date: 20050211
  Serious: No
  Sender: FDA-Public Use
  Company Number: 2004UW02669

PATIENT
  Age: 76 Year
  Sex: Male

DRUGS (6)
  1. CRESTOR [Suspect]
     Dosage: 5 MG PO
     Route: 048
     Dates: start: 20031101
  2. CRESTOR [Suspect]
     Dosage: 10 MG PO
     Route: 048
     Dates: start: 20040126
  3. TOPROL-XL [Concomitant]
  4. ALTACE [Concomitant]
  5. LASIX [Concomitant]
  6. ASPIRIN [Concomitant]

REACTIONS (3)
  - PALPITATIONS [None]
  - STOMACH DISCOMFORT [None]
  - THROMBOCYTOPENIA [None]
